FAERS Safety Report 8421586-6 (Version None)
Quarter: 2012Q2

REPORT INFORMATION
  Report Type: 
  Country: None (occurrence: None)
  Receive Date: 20120608
  Receipt Date: 20120531
  Transmission Date: 20120825
  Serious: Yes (Other)
  Sender: FDA-Public Use
  Company Number: NL-UCBSA-058655

PATIENT
  Age: 32 Year
  Sex: Male

DRUGS (4)
  1. KEPPRA [Suspect]
     Indication: EPILEPSY
     Dosage: DAILY DOSE: 1000 MG
     Route: 048
     Dates: end: 20120101
  2. KEPPRA [Suspect]
  3. NEURONTIN [Concomitant]
  4. LAMICTAL [Concomitant]
     Indication: EPILEPSY
     Route: 048

REACTIONS (7)
  - CONVULSION [None]
  - FATIGUE [None]
  - FEELING ABNORMAL [None]
  - DELUSION [None]
  - CYTOMEGALOVIRUS INFECTION [None]
  - MEMORY IMPAIRMENT [None]
  - DAYDREAMING [None]
